FAERS Safety Report 9499084 (Version 3)
Quarter: 2013Q4

REPORT INFORMATION
  Report Type: Spontaneous
  Country: US (occurrence: US)
  Receive Date: 20130904
  Receipt Date: 20131029
  Transmission Date: 20140711
  Serious: Yes (Other)
  Sender: FDA-Public Use
  Company Number: US-RB-057855-13

PATIENT
  Age: 0 Year
  Sex: Male
  Weight: 2.84 kg

DRUGS (3)
  1. SUBOXONE FILM [Suspect]
     Indication: DRUG DEPENDENCE
     Dosage: SUBOXONE FILM
     Route: 064
     Dates: start: 201211, end: 20130729
  2. SUBOXONE FILM [Suspect]
     Dosage: SUBOXONE FILM
     Route: 063
     Dates: start: 2013
  3. NICOTINE [Suspect]
     Indication: NICOTINE DEPENDENCE
     Dosage: DOSING DETAILS UNKNOWN
     Route: 064
     Dates: start: 201211

REACTIONS (5)
  - Foetal exposure during pregnancy [Recovered/Resolved]
  - Neonatal aspiration [Recovered/Resolved]
  - Limb malformation [Recovering/Resolving]
  - Exposure during breast feeding [Not Recovered/Not Resolved]
  - Neonatal disorder [Not Recovered/Not Resolved]
